FAERS Safety Report 6715223-6 (Version None)
Quarter: 2010Q2

REPORT INFORMATION
  Report Type: 
  Country: None (occurrence: None)
  Receive Date: 20100507
  Receipt Date: 20100505
  Transmission Date: 20101027
  Serious: Yes (Other)
  Sender: FDA-Public Use
  Company Number: US-BRISTOL-MYERS SQUIBB COMPANY-15091606

PATIENT
  Age: 66 Year
  Sex: Female
  Weight: 56 kg

DRUGS (5)
  1. ORENCIA [Suspect]
     Indication: RHEUMATOID ARTHRITIS
  2. BENICAR [Concomitant]
  3. METOPROLOL [Concomitant]
  4. PREDNISONE [Concomitant]
  5. BLOOD PRESSURE MEDICATION [Concomitant]

REACTIONS (5)
  - BRONCHITIS [None]
  - CYSTITIS [None]
  - IRRITABLE BOWEL SYNDROME [None]
  - NAUSEA [None]
  - VOMITING [None]
